FAERS Safety Report 25806231 (Version 1)
Quarter: 2025Q3

REPORT INFORMATION
  Report Type: Spontaneous
  Country: GB (occurrence: GB)
  Receive Date: 20250916
  Receipt Date: 20250916
  Transmission Date: 20251020
  Serious: Yes (Disabling, Other)
  Sender: ABBVIE
  Company Number: None

PATIENT
  Age: 24 Year
  Weight: 77 kg

DRUGS (1)
  1. CITALOPRAM [Suspect]
     Active Substance: CITALOPRAM
     Indication: Anxiety
     Route: 065

REACTIONS (3)
  - Medication error [Unknown]
  - Prescribed overdose [Unknown]
  - Sexual dysfunction [Not Recovered/Not Resolved]
